FAERS Safety Report 7721758-X (Version None)
Quarter: 2011Q3

REPORT INFORMATION
  Report Type: 
  Country: None (occurrence: None)
  Receive Date: 20110831
  Receipt Date: 20110826
  Transmission Date: 20111222
  Serious: Yes (Hospitalization)
  Sender: FDA-Public Use
  Company Number: DE-US-EMD SERONO, INC.-7073332

PATIENT
  Sex: Female
  Weight: 40 kg

DRUGS (6)
  1. SAIZEN [Suspect]
     Route: 058
     Dates: start: 20090105, end: 20090730
  2. SAIZEN [Suspect]
     Route: 058
     Dates: start: 20091211, end: 20100511
  3. SAIZEN [Suspect]
     Route: 058
     Dates: start: 20100512, end: 20100907
  4. SAIZEN [Suspect]
     Route: 058
     Dates: start: 20100908
  5. SAIZEN [Suspect]
     Indication: GROWTH HORMONE DEFICIENCY
     Route: 058
     Dates: start: 20080929, end: 20090104
  6. SAIZEN [Suspect]
     Route: 058
     Dates: start: 20090731, end: 20091210

REACTIONS (1)
  - APPENDICITIS [None]
